FAERS Safety Report 9262104 (Version 1)
Quarter: 2013Q2

REPORT INFORMATION
  Report Type: Report from Study
  Country: CN (occurrence: CN)
  Receive Date: 20130430
  Receipt Date: 20130430
  Transmission Date: 20140414
  Serious: Yes (Other)
  Sender: FDA-Public Use
  Company Number: CN-ROCHE-1219285

PATIENT
  Age: 61 Year
  Sex: Male
  Weight: 44 kg

DRUGS (1)
  1. AVASTIN [Suspect]
     Indication: COLON CANCER
     Route: 042
     Dates: start: 20121101, end: 201211

REACTIONS (2)
  - Metastasis [Unknown]
  - Rash [Unknown]
